FAERS Safety Report 16539826 (Version 1)
Quarter: 2019Q3

REPORT INFORMATION
  Report Type: Spontaneous
  Country: US (occurrence: US)
  Receive Date: 20190708
  Receipt Date: 20190708
  Transmission Date: 20191004
  Serious: No
  Sender: FDA-Public Use
  Company Number: US-009507513-1907USA001234

PATIENT
  Age: 85 Year
  Sex: Female

DRUGS (3)
  1. COLACE [Concomitant]
     Active Substance: DOCUSATE SODIUM
     Indication: CONSTIPATION
     Dosage: THREE TIMES WEEKLY
  2. JANUMET XR [Suspect]
     Active Substance: METFORMIN HYDROCHLORIDE\SITAGLIPTIN PHOSPHATE
     Indication: DIABETES MELLITUS
     Dosage: 1 CAPSULE, TWO TIMES PER DAY
     Route: 048
     Dates: start: 201903
  3. INSULIN [Concomitant]
     Active Substance: INSULIN NOS

REACTIONS (13)
  - Pain [Unknown]
  - Peripheral coldness [Unknown]
  - Somnolence [Unknown]
  - Tenderness [Unknown]
  - Hypopnoea [Unknown]
  - Chest discomfort [Unknown]
  - Headache [Unknown]
  - Asthenia [Unknown]
  - Muscle tightness [Unknown]
  - Dizziness [Unknown]
  - Insomnia [Unknown]
  - Incorrect dose administered [Unknown]
  - Constipation [Unknown]

NARRATIVE: CASE EVENT DATE: 2019
